FAERS Safety Report 5776448-X (Version None)
Quarter: 2008Q2

REPORT INFORMATION
  Report Type: 
  Country: None (occurrence: None)
  Receive Date: 20080616
  Receipt Date: 20080605
  Transmission Date: 20081010
  Serious: Yes (Hospitalization)
  Sender: FDA-Public Use
  Company Number: B0524775A

PATIENT
  Age: 32 Year
  Sex: Male

DRUGS (1)
  1. BUSULPHAN TABLET (GENERIC) (BUSULFAN) [Suspect]
     Dosage: ORAL
     Route: 048

REACTIONS (10)
  - APLASIA [None]
  - BACTERAEMIA [None]
  - DYSPNOEA EXERTIONAL [None]
  - INCORRECT DOSE ADMINISTERED [None]
  - IRON DEFICIENCY ANAEMIA [None]
  - NEUTROPENIA [None]
  - PHLEBITIS [None]
  - SELF-MEDICATION [None]
  - SYNCOPE [None]
  - THROMBOCYTOPENIA [None]
